FAERS Safety Report 4354577-5 (Version None)
Quarter: 2004Q2

REPORT INFORMATION
  Report Type: 
  Country: None (occurrence: None)
  Receive Date: 20040503
  Receipt Date: 20040422
  Transmission Date: 20050107
  Serious: Yes (Death, Hospitalization)
  Sender: FDA-Public Use
  Company Number: US-JNJFOC-20040405649

PATIENT
  Age: 69 Year
  Sex: Male

DRUGS (2)
  1. LEVAQUIN [Suspect]
     Indication: DRUG USE FOR UNKNOWN INDICATION
     Dates: start: 20031222, end: 20031228
  2. FLUCONAZOLE [Concomitant]

REACTIONS (2)
  - PNEUMONIA [None]
  - STAPHYLOCOCCAL INFECTION [None]
